FAERS Safety Report 18975132 (Version 2)
Quarter: 2021Q2

REPORT INFORMATION
  Report Type: Report from Study
  Country: CA (occurrence: CA)
  Receive Date: 20210306
  Receipt Date: 20210416
  Transmission Date: 20210717
  Serious: Yes (Death, Hospitalization)
  Sender: FDA-Public Use
  Company Number: CA-TEVA-2021-CA-1880190

PATIENT
  Age: 54 Year
  Sex: Female

DRUGS (3)
  1. EXIMISTAN [Concomitant]
  2. ZOLADEX [Concomitant]
     Active Substance: GOSERELIN ACETATE
  3. TEVA? EVEROLIMUS [Suspect]
     Active Substance: EVEROLIMUS
     Indication: BREAST CANCER
     Dosage: 10 MILLIGRAM DAILY;
     Route: 048
     Dates: start: 20210206, end: 202102

REACTIONS (4)
  - Night sweats [Unknown]
  - Nausea [Unknown]
  - Death [Fatal]
  - Vomiting [Unknown]

NARRATIVE: CASE EVENT DATE: 20210207
